FAERS Safety Report 15928466 (Version 4)
Quarter: 2019Q2

REPORT INFORMATION
  Report Type: Spontaneous
  Country: JP (occurrence: JP)
  Receive Date: 20190206
  Receipt Date: 20190423
  Transmission Date: 20190711
  Serious: Yes (Hospitalization)
  Sender: FDA-Public Use
  Company Number: JP-OTSUKA-2019_003306AA

PATIENT
  Age: 54 Year
  Sex: Male

DRUGS (16)
  1. CYMBALTA [Suspect]
     Active Substance: DULOXETINE HYDROCHLORIDE
     Dosage: 30 MG, QD
     Route: 048
     Dates: start: 20181126, end: 20181209
  2. STRATTERA [Concomitant]
     Active Substance: ATOMOXETINE HYDROCHLORIDE
     Indication: PRODUCT USED FOR UNKNOWN INDICATION
     Dosage: 40 MG, QD
     Route: 048
     Dates: start: 20180713, end: 20180802
  3. DEPAKENE-R [Concomitant]
     Active Substance: VALPROATE SODIUM
     Indication: PRODUCT USED FOR UNKNOWN INDICATION
     Dosage: 400 MG, QD
     Route: 048
     Dates: start: 20180713, end: 20180822
  4. FLUNITRAZEPAM [Concomitant]
     Active Substance: FLUNITRAZEPAM
     Dosage: 4 MG, QD
     Route: 048
     Dates: start: 20180713, end: 20180930
  5. AMOXAN [Suspect]
     Active Substance: AMOXAPINE
     Dosage: 125 MG, QD
     Route: 048
     Dates: start: 20181029, end: 20181111
  6. AMOXAN [Suspect]
     Active Substance: AMOXAPINE
     Dosage: 50 MG, QD
     Route: 048
     Dates: start: 20180713, end: 20180726
  7. ZOPICLONE [Concomitant]
     Active Substance: ZOPICLONE
     Indication: PRODUCT USED FOR UNKNOWN INDICATION
     Dosage: 7.5 MG, QD
     Route: 048
     Dates: start: 20180713
  8. FLUNITRAZEPAM [Concomitant]
     Active Substance: FLUNITRAZEPAM
     Dosage: 2 MG, QD
     Route: 048
     Dates: start: 20181001, end: 20181105
  9. AMOXAN [Suspect]
     Active Substance: AMOXAPINE
     Indication: PRODUCT USED FOR UNKNOWN INDICATION
     Dosage: 75 MG, QD
     Route: 048
     Dates: start: 20181112, end: 20190117
  10. AMOXAN [Suspect]
     Active Substance: AMOXAPINE
     Dosage: 75 MG, QD
     Route: 048
     Dates: start: 20180727, end: 20181022
  11. AMOXAN [Suspect]
     Active Substance: AMOXAPINE
     Dosage: 100 MG, QD
     Route: 048
     Dates: start: 20181023, end: 20181028
  12. CYMBALTA [Suspect]
     Active Substance: DULOXETINE HYDROCHLORIDE
     Dosage: 40 MG, QD
     Route: 048
     Dates: start: 20181210
  13. ABILIFY [Suspect]
     Active Substance: ARIPIPRAZOLE
     Indication: DEPRESSION
     Dosage: 6 MG, BID (MORNING/EVENING)
     Route: 048
     Dates: start: 20180713, end: 20190228
  14. CYMBALTA [Suspect]
     Active Substance: DULOXETINE HYDROCHLORIDE
     Indication: PRODUCT USED FOR UNKNOWN INDICATION
     Dosage: 20 MG, QD
     Route: 048
     Dates: start: 20181112, end: 20181125
  15. FLUNITRAZEPAM [Concomitant]
     Active Substance: FLUNITRAZEPAM
     Indication: PRODUCT USED FOR UNKNOWN INDICATION
     Dosage: 1 MG, QD
     Route: 048
     Dates: start: 20181106
  16. LANDSEN [Concomitant]
     Active Substance: CLONAZEPAM
     Indication: PRODUCT USED FOR UNKNOWN INDICATION
     Dosage: 1 MG, QD
     Route: 048
     Dates: start: 20180713, end: 20181121

REACTIONS (2)
  - Parkinsonism [Recovering/Resolving]
  - Inappropriate schedule of product administration [Unknown]

NARRATIVE: CASE EVENT DATE: 20181125
